FAERS Safety Report 9326250 (Version 4)
Quarter: 2013Q3

REPORT INFORMATION
  Report Type: Spontaneous
  Country: DE (occurrence: DE)
  Receive Date: 20130604
  Receipt Date: 20130722
  Transmission Date: 20140515
  Serious: Yes (Life-Threatening, Hospitalization)
  Sender: FDA-Public Use
  Company Number: DE-OTSUKA-EU-2013-10128

PATIENT
  Age: 87 Year
  Sex: Female
  Weight: 81 kg

DRUGS (5)
  1. PLETAL [Suspect]
     Indication: PERIPHERAL ARTERIAL OCCLUSIVE DISEASE
     Dosage: 50 MG MILLIGRAM(S), DAILY DOSE
     Route: 048
     Dates: start: 20130425, end: 20130428
  2. PLETAL [Suspect]
     Dosage: 50 MG MILLIGRAM(S), BID
     Route: 048
     Dates: start: 20130502, end: 20130502
  3. PLETAL [Suspect]
     Dosage: 150 MG MILLIGRAM(S), DAILY DOSE
     Route: 048
     Dates: start: 20130503, end: 20130506
  4. PLETAL [Suspect]
     Dosage: 100 MG MILLIGRAM(S), BID
     Route: 048
     Dates: start: 20130506, end: 20130523
  5. ACETYLSALICYLIC ACID [Concomitant]

REACTIONS (7)
  - Cor pulmonale [Unknown]
  - Apnoea [Unknown]
  - Respiratory failure [Unknown]
  - Pulmonary hypertension [Unknown]
  - Cardiac failure [Unknown]
  - Hypertension [Unknown]
  - General physical health deterioration [Unknown]
